FAERS Safety Report 5918628-6 (Version None)
Quarter: 2008Q4

REPORT INFORMATION
  Report Type: 
  Country: None (occurrence: None)
  Receive Date: 20081015
  Receipt Date: 20081008
  Transmission Date: 20090506
  Serious: Yes (Hospitalization)
  Sender: FDA-Public Use
  Company Number: BE-AVENTIS-200815213EU

PATIENT
  Age: 57 Year
  Sex: Male
  Weight: 94 kg

DRUGS (9)
  1. CLEXANE [Suspect]
     Dosage: DOSE: UNK
     Route: 058
     Dates: start: 20080630, end: 20080704
  2. CLEXANE [Suspect]
     Dosage: DOSE: 1/2 PCI BOLUS
     Dates: start: 20080702, end: 20080702
  3. CLEXANE [Suspect]
     Dosage: DOSE: UNK
     Route: 058
     Dates: start: 20080630, end: 20080704
  4. CLEXANE [Suspect]
     Dosage: DOSE: 1/2 PCI BOLUS
     Dates: start: 20080702, end: 20080702
  5. ZOCOR [Concomitant]
     Route: 048
  6. ASAFLOW [Concomitant]
  7. PLAVIX [Concomitant]
     Dates: start: 20080702
  8. EMCONCOR                           /00802601/ [Concomitant]
  9. BELSAR (OLMESARTAN MEDOXOMIL) [Concomitant]

REACTIONS (3)
  - CATHETER THROMBOSIS [None]
  - CORONARY ARTERY THROMBOSIS [None]
  - MYOCARDIAL INFARCTION [None]
